FAERS Safety Report 4714549-5 (Version None)
Quarter: 2005Q3

REPORT INFORMATION
  Report Type: 
  Country: None (occurrence: None)
  Receive Date: 20050714
  Receipt Date: 20050311
  Transmission Date: 20060218
  Serious: Yes (Hospitalization)
  Sender: FDA-Public Use
  Company Number: US-MERCK-0503USA02693

PATIENT
  Age: 47 Year
  Sex: Male
  Weight: 123 kg

DRUGS (2)
  1. VIOXX [Suspect]
     Indication: PAIN IN EXTREMITY
     Route: 048
     Dates: start: 20030113, end: 20040315
  2. VIOXX [Suspect]
     Route: 048
     Dates: start: 20040427, end: 20040916

REACTIONS (3)
  - CARDIAC DISORDER [None]
  - LOW DENSITY LIPOPROTEIN INCREASED [None]
  - MYOCARDIAL INFARCTION [None]
